FAERS Safety Report 9494824 (Version 1)
Quarter: 2013Q3

REPORT INFORMATION
  Report Type: Spontaneous
  Country: US (occurrence: None)
  Receive Date: 20130830
  Receipt Date: 20130830
  Transmission Date: 20140515
  Serious: No
  Sender: FDA-Public Use
  Company Number: None

PATIENT
  Age: 53 Year
  Sex: Male

DRUGS (1)
  1. OMNIPAQUE [Suspect]
     Indication: COMPUTERISED TOMOGRAM
     Dosage: 3CC/S; LT A/C
     Dates: start: 20130816

REACTIONS (5)
  - Hypoaesthesia [None]
  - Dizziness [None]
  - Haemorrhage [None]
  - Pain in extremity [None]
  - Livedo reticularis [None]
